FAERS Safety Report 15484433 (Version 1)
Quarter: 2018Q4

REPORT INFORMATION
  Report Type: Spontaneous
  Country: US (occurrence: US)
  Receive Date: 20181010
  Receipt Date: 20181010
  Transmission Date: 20190205
  Serious: Yes (Death, Life-Threatening, Hospitalization, Other)
  Sender: FDA-Public Use
  Company Number: US-ALLERGAN-1839513US

PATIENT
  Age: 80 Year
  Sex: Male

DRUGS (3)
  1. MORPHINE SULFATE UNK [Suspect]
     Active Substance: MORPHINE SULFATE
     Indication: ASSISTED SUICIDE
     Dosage: MOSTLY EMPTY BOTTLE OF MORPHINE AT BEDSIDE
     Route: 048
  2. PHENOBARBITAL. [Suspect]
     Active Substance: PHENOBARBITAL
     Indication: ASSISTED SUICIDE
     Dosage: HIGH DOSE
     Route: 048
  3. CHLORAL HYDRATE [Suspect]
     Active Substance: CHLORAL HYDRATE
     Indication: ASSISTED SUICIDE
     Dosage: HIGH DOSE
     Route: 048

REACTIONS (7)
  - Unresponsive to stimuli [Fatal]
  - Intentional overdose [Fatal]
  - Cyanosis [Fatal]
  - Respiratory depression [Fatal]
  - Pulse abnormal [Fatal]
  - Apnoea [Fatal]
  - Off label use [Unknown]
